FAERS Safety Report 5378189-X (Version None)
Quarter: 2007Q3

REPORT INFORMATION
  Report Type: 
  Country: None (occurrence: None)
  Receive Date: 20070705
  Receipt Date: 20070622
  Transmission Date: 20080115
  Serious: Yes (Death, Hospitalization)
  Sender: FDA-Public Use
  Company Number: JP-JNJFOC-20070400472

PATIENT
  Sex: Male
  Weight: 40 kg

DRUGS (11)
  1. ITRACONAZOLE [Suspect]
     Indication: ORAL CANDIDIASIS
     Route: 048
     Dates: start: 20070330, end: 20070331
  2. ALLOPURINOL [Suspect]
     Indication: HYPERURICAEMIA
     Route: 048
     Dates: start: 20070214, end: 20070330
  3. PREDONINE [Concomitant]
     Indication: ANAEMIA HAEMOLYTIC AUTOIMMUNE
     Route: 048
  4. DIFLUCAN [Concomitant]
     Indication: ORAL CANDIDIASIS
     Route: 048
  5. BAKTAR [Concomitant]
     Indication: ANTIBIOTIC PROPHYLAXIS
     Route: 048
  6. TAKEPRON [Concomitant]
     Indication: REFLUX OESOPHAGITIS
     Route: 048
  7. TAKEPRON [Concomitant]
     Indication: GASTRIC ULCER
     Route: 048
  8. CLARITHROMYCIN [Concomitant]
     Indication: BRONCHITIS CHRONIC
     Route: 048
  9. UNIPHYLL [Concomitant]
     Route: 048
  10. BONALON [Concomitant]
     Indication: OSTEOPOROSIS
     Route: 048
  11. AMARYL [Concomitant]
     Indication: DIABETES MELLITUS
     Route: 048

REACTIONS (2)
  - CEREBRAL INFARCTION [None]
  - LIVER DISORDER [None]
